APPROVED DRUG PRODUCT: METHYLPHENIDATE HYDROCHLORIDE
Active Ingredient: METHYLPHENIDATE HYDROCHLORIDE
Strength: 36MG
Dosage Form/Route: TABLET, EXTENDED RELEASE;ORAL
Application: A076772 | Product #003 | TE Code: AB
Applicant: ACTAVIS LABORATORIES FL INC AN INDIRECT WHOLLY OWNED SUB OF TEVA PHARMACEUTICALS USA INC
Approved: Mar 22, 2018 | RLD: No | RS: No | Type: RX